FAERS Safety Report 7133495-3 (Version None)
Quarter: 2010Q4

REPORT INFORMATION
  Report Type: 
  Country: None (occurrence: None)
  Receive Date: 20101202
  Receipt Date: 20101124
  Transmission Date: 20110411
  Serious: Yes (Life-Threatening, Disabling)
  Sender: FDA-Public Use
  Company Number: GB-PFIZER INC-2010156815

PATIENT
  Age: 48 Year
  Sex: Female
  Weight: 74.5 kg

DRUGS (6)
  1. CELECOXIB [Suspect]
     Indication: SLE ARTHRITIS
     Dosage: 100 MG, 2X/DAY
     Route: 048
     Dates: start: 20041116, end: 20101010
  2. BUTRANS [Concomitant]
  3. LANSOPRAZOLE [Concomitant]
  4. METHOTREXATE SODIUM [Concomitant]
  5. MICRONOR [Concomitant]
  6. PREDNISOLONE [Concomitant]

REACTIONS (5)
  - COUGH [None]
  - DYSPNOEA [None]
  - LOWER RESPIRATORY TRACT INFECTION [None]
  - PLEURITIC PAIN [None]
  - PULMONARY EMBOLISM [None]
